FAERS Safety Report 16143555 (Version 1)
Quarter: 2019Q2

REPORT INFORMATION
  Report Type: Spontaneous
  Country: DE (occurrence: DE)
  Receive Date: 20190401
  Receipt Date: 20190401
  Transmission Date: 20190711
  Serious: Yes (Other)
  Sender: FDA-Public Use
  Company Number: DE-PFIZER INC-2019135070

PATIENT
  Sex: Male

DRUGS (1)
  1. OXALIPLATIN. [Suspect]
     Active Substance: OXALIPLATIN
     Dosage: IN 500 ML 5% GLUCOSE
     Route: 042

REACTIONS (4)
  - Diabetic metabolic decompensation [Unknown]
  - Nausea [Unknown]
  - Thirst [Unknown]
  - Somnolence [Unknown]
